FAERS Safety Report 10936627 (Version 2)
Quarter: 2015Q1

REPORT INFORMATION
  Report Type: Spontaneous
  Country: US (occurrence: None)
  Receive Date: 20150212
  Receipt Date: 20150212
  Transmission Date: 20150721
  Serious: No
  Sender: FDA-Public Use
  Company Number: TPA2011A00304

PATIENT
  Age: 91 Year
  Sex: Female
  Weight: 83.46 kg

DRUGS (17)
  1. SYTHROID (LEVOTHYROXINE SODIUM) [Concomitant]
  2. POTASSIUM CHLORIDE (POTASSIUM CHLORIDE) [Concomitant]
     Active Substance: POTASSIUM CHLORIDE
  3. TRAMADOL (TRAMADOL) [Concomitant]
     Active Substance: TRAMADOL
  4. DOXEPIN (DOXEPIN) [Concomitant]
  5. METOPROLOL TARTRATE (METOPROLOL TARTRATE) [Concomitant]
  6. PREDNISONE (PREDNISONE) [Concomitant]
     Active Substance: PREDNISONE
  7. RANITIDINE HCI (RANITIDINE) [Concomitant]
  8. ULORIC [Suspect]
     Active Substance: FEBUXOSTAT
     Indication: GOUTY TOPHUS
     Route: 048
     Dates: start: 20090520, end: 20090522
  9. AMLODIPINE [Concomitant]
     Active Substance: AMLODIPINE BESYLATE
  10. NITROGLYCERI (GLYCERYL TRINITRATE) [Concomitant]
  11. DEMADEX (TORASEMIDE) [Concomitant]
  12. MAALOX (MAGNESIUM HYDROXIDE, ALUMINIUM, SIMETICONED) [Concomitant]
  13. ACETAMINOPHEN (PARACETAMOL) [Concomitant]
     Active Substance: ACETAMINOPHEN
  14. XALATAN [Concomitant]
     Active Substance: LATANOPROST
  15. HYDRALAZINE (HYDRALAZINE) [Concomitant]
     Active Substance: HYDRALAZINE HYDROCHLORIDE
  16. ISOSORBIDE MONONITRATE SUSTAINED RELEASE 24HR (ISOSORBIDE MONONITRATE) [Concomitant]
  17. AMBIEN [Concomitant]
     Active Substance: ZOLPIDEM TARTRATE

REACTIONS (2)
  - Rash [None]
  - Rash pruritic [None]

NARRATIVE: CASE EVENT DATE: 20090521
